FAERS Safety Report 15928363 (Version 1)
Quarter: 2019Q1

REPORT INFORMATION
  Report Type: Spontaneous
  Country: FR (occurrence: FR)
  Receive Date: 20190206
  Receipt Date: 20190206
  Transmission Date: 20190417
  Serious: Yes (Death)
  Sender: FDA-Public Use
  Company Number: FR-PFIZER INC-2019047927

PATIENT
  Age: 85 Year
  Sex: Female
  Weight: 76 kg

DRUGS (4)
  1. PACLITAXEL. [Suspect]
     Active Substance: PACLITAXEL
     Indication: ADENOMA BENIGN
     Dosage: 139.2 MG, 1X/DAY
     Route: 041
     Dates: start: 20190103, end: 20190103
  2. RANITIDINE. [Concomitant]
     Active Substance: RANITIDINE
     Indication: PREMEDICATION
     Dosage: 50 MG, 1X/DAY
     Route: 040
     Dates: start: 20190103, end: 20190103
  3. METHYLPREDNISOLONE. [Suspect]
     Active Substance: METHYLPREDNISOLONE
     Indication: PREMEDICATION
     Dosage: 80 MG, 1X/DAY
     Route: 040
     Dates: start: 20190103, end: 20190103
  4. DEXCHLORPHENIRAMINE [Concomitant]
     Active Substance: DEXCHLORPHENIRAMINE
     Indication: PREMEDICATION
     Dosage: 5 MG, 1X/DAY
     Route: 040
     Dates: start: 20190103, end: 20190103

REACTIONS (1)
  - Cardio-respiratory arrest [Fatal]

NARRATIVE: CASE EVENT DATE: 20190103
